FAERS Safety Report 7781871-8 (Version None)
Quarter: 2011Q3

REPORT INFORMATION
  Report Type: 
  Country: None (occurrence: None)
  Receive Date: 20110927
  Receipt Date: 20110922
  Transmission Date: 20111222
  Serious: Yes (Hospitalization)
  Sender: FDA-Public Use
  Company Number: US-B.I. PHARMACEUTICALS,INC./RIDGEFIELD-2011-BP-19873BP

PATIENT
  Age: 80 Year
  Sex: Female
  Weight: 106.59 kg

DRUGS (2)
  1. MELOXICAM [Suspect]
     Dosage: 7.5 MG
     Route: 048
     Dates: end: 20110719
  2. PRADAXA [Suspect]
     Indication: ATRIAL FIBRILLATION
     Dosage: 300 MG
     Route: 048
     Dates: start: 20110601

REACTIONS (6)
  - ACUTE MYOCARDIAL INFARCTION [None]
  - GASTROINTESTINAL HAEMORRHAGE [None]
  - HAEMORRHAGE [None]
  - DIVERTICULUM [None]
  - GASTRIC HAEMORRHAGE [None]
  - SMALL INTESTINAL HAEMORRHAGE [None]
